FAERS Safety Report 12686056 (Version 1)
Quarter: 2016Q3

REPORT INFORMATION
  Report Type: Spontaneous
  Country: US (occurrence: US)
  Receive Date: 20160825
  Receipt Date: 20160825
  Transmission Date: 20161109
  Serious: Yes (Hospitalization)
  Sender: FDA-Public Use
  Company Number: US-PERRIGO-16US019270

PATIENT
  Age: 31 Year
  Sex: Male

DRUGS (10)
  1. BUSPIRONE HCL [Suspect]
     Active Substance: BUSPIRONE HYDROCHLORIDE
     Indication: ANXIETY
     Dosage: UNKNOWN, UNKNOWN
     Route: 048
     Dates: start: 2012, end: 20160707
  2. IBUPROFEN. [Suspect]
     Active Substance: IBUPROFEN
     Indication: INTENTIONAL OVERDOSE
     Dosage: UNKNOWN, UNKNOWN
     Route: 048
     Dates: start: 20160721, end: 20160721
  3. BUSPIRONE HCL [Suspect]
     Active Substance: BUSPIRONE HYDROCHLORIDE
     Indication: INTENTIONAL OVERDOSE
     Dosage: 5 MG QAM, 10 MG QPM DAILY
     Route: 048
     Dates: start: 20160707
  4. SERTRALINE AUROBINDO [Suspect]
     Active Substance: SERTRALINE HYDROCHLORIDE
     Indication: PRODUCT USED FOR UNKNOWN INDICATION
     Dosage: 50 MG, QD
     Route: 048
     Dates: start: 2012, end: 20160721
  5. MELATONIN [Suspect]
     Active Substance: MELATONIN
     Indication: INTENTIONAL OVERDOSE
     Dosage: UNKNOWN, UNKNOWN
     Route: 048
     Dates: start: 20160721, end: 20160721
  6. BUPROPION HCL ER [Suspect]
     Active Substance: BUPROPION HYDROCHLORIDE
     Indication: DEPRESSION
     Dosage: 150 MG, QD
     Route: 048
     Dates: start: 20160721
  7. SERTRALINE AUROBINDO [Suspect]
     Active Substance: SERTRALINE HYDROCHLORIDE
     Indication: INTENTIONAL OVERDOSE
     Dosage: UNK
     Route: 048
     Dates: start: 20160721, end: 20160721
  8. BUPROPION HCL ER [Suspect]
     Active Substance: BUPROPION HYDROCHLORIDE
     Indication: INTENTIONAL OVERDOSE
     Dosage: UNK
     Route: 048
     Dates: start: 20160721, end: 20160721
  9. BENADRYL [Suspect]
     Active Substance: DIPHENHYDRAMINE HYDROCHLORIDE
     Indication: INTENTIONAL OVERDOSE
     Dosage: UNK
     Route: 048
     Dates: start: 20160721, end: 20160721
  10. TYLENOL [Suspect]
     Active Substance: ACETAMINOPHEN
     Indication: INTENTIONAL OVERDOSE
     Dosage: UNK
     Route: 048
     Dates: start: 20160721, end: 20160721

REACTIONS (2)
  - Intentional overdose [Recovered/Resolved]
  - Hepatic enzyme increased [Unknown]

NARRATIVE: CASE EVENT DATE: 20160721
